FAERS Safety Report 7683611-X (Version None)
Quarter: 2011Q3

REPORT INFORMATION
  Report Type: 
  Country: None (occurrence: None)
  Receive Date: 20110809
  Receipt Date: 20110804
  Transmission Date: 20111222
  Serious: Yes (Hospitalization)
  Sender: FDA-Public Use
  Company Number: 2011029334

PATIENT
  Sex: Male
  Weight: 126.1 kg

DRUGS (13)
  1. ZEMAIRA [Suspect]
     Indication: ALPHA-1 ANTI-TRYPSIN DEFICIENCY
     Dosage: SEE IMAGE
     Route: 042
     Dates: start: 20110101
  2. ZEMAIRA [Suspect]
     Indication: ALPHA-1 ANTI-TRYPSIN DEFICIENCY
     Dosage: SEE IMAGE
     Route: 042
     Dates: start: 20100127
  3. CARDIZEM [Concomitant]
  4. PROZAC [Concomitant]
  5. HYDRALAZINE HCL [Concomitant]
  6. COREG [Concomitant]
  7. LANTUS [Concomitant]
  8. VANCOMYCIN [Concomitant]
  9. POTASSIUM CHLORIDE [Concomitant]
  10. LISINOPRIL-HCTZ (PRINZIDE /00977901/) [Concomitant]
  11. ZANTAC [Concomitant]
  12. HYDROCODONE-APAP (HYDROCODONE) [Concomitant]
  13. DUONEB [Concomitant]

REACTIONS (4)
  - BLOOD DISORDER [None]
  - INFECTION [None]
  - POISONING [None]
  - WOUND [None]
